FAERS Safety Report 13408649 (Version 1)
Quarter: 2017Q2

REPORT INFORMATION
  Report Type: Spontaneous
  Country: US (occurrence: US)
  Receive Date: 20170405
  Receipt Date: 20170405
  Transmission Date: 20170830
  Serious: Yes (Other)
  Sender: FDA-Public Use
  Company Number: None

PATIENT
  Age: 32 Year
  Sex: Male
  Weight: 96.75 kg

DRUGS (2)
  1. ALPRAZOLAM. [Suspect]
     Active Substance: ALPRAZOLAM
     Indication: ANXIETY
     Route: 048
  2. BUSPIRONE [Suspect]
     Active Substance: BUSPIRONE HYDROCHLORIDE
     Indication: ANXIETY
     Route: 048

REACTIONS (7)
  - Disease recurrence [None]
  - Road traffic accident [None]
  - Tinnitus [None]
  - Neuralgia [None]
  - Temporomandibular joint syndrome [None]
  - Dizziness [None]
  - Amnesia [None]

NARRATIVE: CASE EVENT DATE: 20170330
